FAERS Safety Report 17081983 (Version 3)
Quarter: 2020Q1

REPORT INFORMATION
  Report Type: Spontaneous
  Country: US (occurrence: US)
  Receive Date: 20191127
  Receipt Date: 20200106
  Transmission Date: 20200409
  Serious: No
  Sender: FDA-Public Use
  Company Number: US-PFIZER INC-2019322198

PATIENT
  Age: 78 Year
  Sex: Female

DRUGS (1)
  1. IBRANCE [Suspect]
     Active Substance: PALBOCICLIB
     Indication: BREAST CANCER FEMALE
     Dosage: 75 MG, CYCLIC (ONE CAPSULE QOD (EVERY OTHER DAY) FOR THREE WEEKS ON AND ONE WEEK OFF)

REACTIONS (3)
  - Off label use [Unknown]
  - Product use issue [Unknown]
  - Hypoacusis [Unknown]
